FAERS Safety Report 15928946 (Version 1)
Quarter: 2019Q1

REPORT INFORMATION
  Report Type: Spontaneous
  Country: IT (occurrence: IT)
  Receive Date: 20190206
  Receipt Date: 20190206
  Transmission Date: 20190417
  Serious: Yes (Other)
  Sender: FDA-Public Use
  Company Number: IT-MYLANLABS-2019M1010721

PATIENT
  Age: 94 Year
  Sex: Female

DRUGS (4)
  1. CONDRAL                            /02117802/ [Concomitant]
  2. DEFLAN [Concomitant]
     Active Substance: DEFLAZACORT
  3. ZOLPIDEM [Suspect]
     Active Substance: ZOLPIDEM\ZOLPIDEM TARTRATE
     Indication: PRODUCT USED FOR UNKNOWN INDICATION
     Dosage: 6 DOSAGE FORM, TOTAL
     Route: 048
     Dates: start: 20180624, end: 20180624
  4. CONGESCOR [Concomitant]
     Active Substance: BISOPROLOL

REACTIONS (3)
  - Drug dependence [Recovering/Resolving]
  - Dyskinesia [Recovering/Resolving]
  - Drug abuse [Unknown]

NARRATIVE: CASE EVENT DATE: 20180624
